FAERS Safety Report 21583655 (Version 1)
Quarter: 2022Q4

REPORT INFORMATION
  Report Type: Spontaneous
  Country: US (occurrence: None)
  Receive Date: 20221110
  Receipt Date: 20221110
  Transmission Date: 20230113
  Serious: No
  Sender: FDA-Public Use
  Company Number: None

PATIENT
  Age: 70 Year
  Sex: Female
  Weight: 97.07 kg

DRUGS (24)
  1. LENALIDOMIDE [Suspect]
     Active Substance: LENALIDOMIDE
     Indication: Plasma cell myeloma
     Dosage: OTHER FREQUENCY : 2W, 1W OFF;?
     Route: 048
  2. ACYCLOVIR [Concomitant]
     Active Substance: ACYCLOVIR
  3. ALLOPURINOL [Concomitant]
     Active Substance: ALLOPURINOL
  4. ANASTROZOLE [Concomitant]
     Active Substance: ANASTROZOLE
  5. ASPIRIN [Concomitant]
     Active Substance: ASPIRIN
  6. BACTRIM DS [Concomitant]
     Active Substance: SULFAMETHOXAZOLE\TRIMETHOPRIM
  7. Benefiber Oral Powder [Concomitant]
  8. COLACE [Concomitant]
     Active Substance: DOCUSATE SODIUM
  9. COMBIGAN [Concomitant]
     Active Substance: BRIMONIDINE TARTRATE\TIMOLOL MALEATE
  10. DEXAMETHASONE [Concomitant]
     Active Substance: DEXAMETHASONE
  11. FENOFIBRATE [Concomitant]
     Active Substance: FENOFIBRATE
  12. FUROSEMIDE [Concomitant]
     Active Substance: FUROSEMIDE
  13. LATANOPROST [Concomitant]
     Active Substance: LATANOPROST
  14. LOSARTAN [Concomitant]
     Active Substance: LOSARTAN
  15. POTASSIUM [Concomitant]
     Active Substance: POTASSIUM
  16. Multivitamin Adults [Concomitant]
  17. POTASSIUM CHLORIDE [Concomitant]
     Active Substance: POTASSIUM CHLORIDE
  18. PROCHLORPERAZINE MALEATE [Concomitant]
     Active Substance: PROCHLORPERAZINE MALEATE
  19. TYLENOL [Concomitant]
     Active Substance: ACETAMINOPHEN
  20. VELCADE [Concomitant]
     Active Substance: BORTEZOMIB
  21. VELCADE [Concomitant]
     Active Substance: BORTEZOMIB
  22. VITAMIN D3 [Concomitant]
     Active Substance: CHOLECALCIFEROL
  23. XARELTO [Concomitant]
     Active Substance: RIVAROXABAN
  24. ZOFRAN [Concomitant]
     Active Substance: ONDANSETRON HYDROCHLORIDE

REACTIONS (1)
  - Platelet count decreased [None]
